FAERS Safety Report 8244060-9 (Version None)
Quarter: 2012Q1

REPORT INFORMATION
  Report Type: 
  Country: None (occurrence: None)
  Receive Date: 20120329
  Receipt Date: 20120319
  Transmission Date: 20120608
  Serious: Yes (Death, Other)
  Sender: FDA-Public Use
  Company Number: US-ELI_LILLY_AND_COMPANY-US201111006445

PATIENT
  Sex: Male
  Weight: 52.8 kg

DRUGS (7)
  1. ZYPREXA RELPREVV [Suspect]
     Indication: SCHIZOPHRENIA, PARANOID TYPE
     Dosage: 300 MG, Q 2 WEEKS
     Route: 030
     Dates: start: 20110401
  2. WELLBUTRIN XL [Concomitant]
     Dosage: 300 MG, QD
     Route: 048
  3. OYSTER SHELL CALCIUM [Concomitant]
  4. PROZAC [Concomitant]
     Dosage: 40 MG, QD
     Route: 048
  5. TOPROL-XL [Concomitant]
     Dosage: 25 MG, QD
     Route: 048
  6. MULTI-VITAMIN [Concomitant]
  7. MEGACE [Concomitant]
     Dosage: 200 MG, BID
     Route: 048

REACTIONS (1)
  - CARDIO-RESPIRATORY ARREST [None]
